FAERS Safety Report 20398311 (Version 2)
Quarter: 2022Q1

REPORT INFORMATION
  Report Type: Spontaneous
  Country: US (occurrence: US)
  Receive Date: 20220131
  Receipt Date: 20220201
  Transmission Date: 20220423
  Serious: No
  Sender: FDA-Public Use
  Company Number: US-ABBVIE-21K-163-3859491-00

PATIENT
  Sex: Female

DRUGS (1)
  1. HUMIRA [Suspect]
     Active Substance: ADALIMUMAB
     Indication: Product used for unknown indication
     Route: 058

REACTIONS (7)
  - C-reactive protein increased [Unknown]
  - Urticaria [Unknown]
  - Eczema [Unknown]
  - Eye disorder [Unknown]
  - Injection site swelling [Unknown]
  - Nasopharyngitis [Unknown]
  - Drug ineffective [Unknown]
